FAERS Safety Report 9175101 (Version 2)
Quarter: 2013Q1

REPORT INFORMATION
  Report Type: Spontaneous
  Country: CA (occurrence: CA)
  Receive Date: 20130320
  Receipt Date: 20130326
  Transmission Date: 20140127
  Serious: Yes (Other)
  Sender: FDA-Public Use
  Company Number: CA-JNJFOC-20130305377

PATIENT
  Age: 59 Year
  Sex: Female
  Weight: 63.5 kg

DRUGS (7)
  1. NICODERM CQ [Suspect]
     Indication: SMOKING CESSATION THERAPY
     Dosage: 1 PATCH
     Route: 062
     Dates: start: 20121223
  2. NICODERM CQ [Suspect]
     Indication: SMOKING CESSATION THERAPY
     Route: 062
     Dates: end: 20130110
  3. NICODERM CQ [Suspect]
     Indication: SMOKING CESSATION THERAPY
     Route: 062
     Dates: start: 20130305
  4. TYLENOL NO.3 [Concomitant]
     Indication: ARTHRITIS
     Dosage: FOR 5 YEARS
     Route: 065
     Dates: start: 2008
  5. UNKNOWN MEDICATION [Concomitant]
     Indication: DEPRESSION
     Dosage: FOR 6 MONTHS
     Route: 065
     Dates: start: 201210
  6. UNKNOWN MEDICATION [Concomitant]
     Indication: HERNIA
     Dosage: FOR 6 MONTHS
     Route: 065
     Dates: start: 20120201
  7. AMITRIPTYLINE [Concomitant]
     Indication: DEPRESSION
     Dosage: FOR 6 MONTHS
     Route: 065
     Dates: start: 201210

REACTIONS (3)
  - Depression [Unknown]
  - Fatigue [Unknown]
  - Application site hypersensitivity [Recovered/Resolved]
